FAERS Safety Report 10209334 (Version 1)
Quarter: 2014Q2

REPORT INFORMATION
  Report Type: Not Available
  Country: AU (occurrence: AU)
  Receive Date: 20140531
  Receipt Date: 20140531
  Transmission Date: 20141212
  Serious: No
  Sender: FDA-Public Use
  Company Number: AU-LUPIN PHARMACEUTICALS INC.-2014-00969

PATIENT
  Sex: Female

DRUGS (3)
  1. ISABELLE [Suspect]
     Indication: PRODUCT USED FOR UNKNOWN INDICATION
     Route: 065
     Dates: end: 2014
  2. ISABELLE [Suspect]
     Route: 065
     Dates: start: 2014, end: 2014
  3. ISABELLE [Suspect]
     Route: 065
     Dates: start: 2014

REACTIONS (2)
  - Expired product administered [Unknown]
  - No adverse event [Unknown]
